FAERS Safety Report 19568706 (Version 2)
Quarter: 2021Q3

REPORT INFORMATION
  Report Type: Spontaneous
  Country: JP (occurrence: JP)
  Receive Date: 20210714
  Receipt Date: 20210715
  Transmission Date: 20211014
  Serious: Yes (Hospitalization, Other)
  Sender: FDA-Public Use
  Company Number: JP-LUNDBECK-DKLU3035328

PATIENT
  Age: 13 Year
  Sex: Male
  Weight: 32.6 kg

DRUGS (9)
  1. PROPOFOL. [Concomitant]
     Active Substance: PROPOFOL
     Indication: PRODUCT USED FOR UNKNOWN INDICATION
     Route: 065
  2. LEVETIRACETAM. [Suspect]
     Active Substance: LEVETIRACETAM
     Indication: EPILEPSY
     Dosage: 2000 MG, QD,FOR 3 YEARS MORE OVER
     Route: 065
  3. DIACOMIT [Suspect]
     Active Substance: STIRIPENTOL
     Route: 065
  4. MIDAZOLAM. [Concomitant]
     Active Substance: MIDAZOLAM
     Indication: PRODUCT USED FOR UNKNOWN INDICATION
     Route: 065
  5. CLOBAZAM. [Suspect]
     Active Substance: CLOBAZAM
     Indication: EPILEPSY
     Dosage: 12 MG, QD,FOR 3 YEARS MORE OVER
     Route: 051
  6. VALERINA [VALERIANA OFFICINALIS ROOT] [Suspect]
     Active Substance: VALERIAN
     Indication: EPILEPSY
     Dosage: 800 MG, QD,FOR 3 YEARS MORE OVER
     Route: 051
  7. VALPROATE SODIUM. [Suspect]
     Active Substance: VALPROATE SODIUM
     Indication: SEVERE MYOCLONIC EPILEPSY OF INFANCY
     Dosage: 800 MG, QD,FOR 3 YEARS MORE OVER
     Route: 051
  8. VALPROATE SODIUM. [Suspect]
     Active Substance: VALPROATE SODIUM
     Indication: EPILEPSY
     Route: 065
  9. DIACOMIT [Suspect]
     Active Substance: STIRIPENTOL
     Indication: SEVERE MYOCLONIC EPILEPSY OF INFANCY
     Dosage: 500 MG, QD,FOR 3 YEARS MORE OVER
     Route: 051

REACTIONS (3)
  - Aspiration [Unknown]
  - Gynaecomastia [Unknown]
  - Pneumonia aspiration [Recovered/Resolved]
